FAERS Safety Report 8832245 (Version 2)
Quarter: 2012Q4

REPORT INFORMATION
  Report Type: 
  Country: ZA (occurrence: ZA)
  Receive Date: 20121009
  Receipt Date: 20121015
  Transmission Date: 20130627
  Serious: Yes (Hospitalization, Other)
  Sender: FDA-Public Use
  Company Number: ZA-B.I. PHARMACEUTICALS,INC./RIDGEFIELD-2012-AP-00840ZA

PATIENT
  Age: 74 None
  Sex: Female

DRUGS (5)
  1. PRADAXA [Suspect]
     Indication: ATRIAL FIBRILLATION
     Dosage: 220 mg
     Route: 048
  2. ASPAVOR [Concomitant]
     Indication: BLOOD CHOLESTEROL INCREASED
  3. GLUCOPHAGE [Concomitant]
     Indication: DIABETES MELLITUS
     Dosage: 1000 mg
  4. LANOXIN [Concomitant]
     Dosage: half daily
  5. SPIRACTIN [Concomitant]

REACTIONS (5)
  - Transient ischaemic attack [Recovered/Resolved]
  - Urinary bladder haemorrhage [Recovered/Resolved]
  - Proctalgia [Recovered/Resolved]
  - Vulvovaginal pain [Recovered/Resolved]
  - Blood disorder [Recovered/Resolved]
